FAERS Safety Report 9234462 (Version 1)
Quarter: 2013Q2

REPORT INFORMATION
  Report Type: Spontaneous
  Country: US (occurrence: US)
  Receive Date: 20130416
  Receipt Date: 20130416
  Transmission Date: 20140414
  Serious: No
  Sender: FDA-Public Use
  Company Number: US-BANPHARM-20120152

PATIENT
  Age: 68 Year
  Sex: Female
  Weight: 74.83 kg

DRUGS (5)
  1. ALEVE LIQUID GELS 220 MG [Suspect]
     Dosage: 1 DF, PRN
     Route: 048
     Dates: start: 20120905
  2. ATENOLOL [Concomitant]
  3. AMLODIPINE [Concomitant]
  4. SIMVASTATIN [Concomitant]
  5. METRAZOLE [Concomitant]

REACTIONS (1)
  - Glossodynia [Recovered/Resolved]
